FAERS Safety Report 19908227 (Version 1)
Quarter: 2021Q4

REPORT INFORMATION
  Report Type: Spontaneous
  Country: US (occurrence: US)
  Receive Date: 20211002
  Receipt Date: 20211002
  Transmission Date: 20220303
  Serious: Yes (Other)
  Sender: FDA-Public Use
  Company Number: US-MSNLABS-2021MSNSPO00432

PATIENT

DRUGS (1)
  1. CAPECITABINE [Suspect]
     Active Substance: CAPECITABINE
     Indication: Small intestine carcinoma
     Dosage: 3 TABLETS TWICE DAILY FOR 7 DAYS AND 7 DAYS OFF
     Route: 048
     Dates: start: 20200423, end: 202105

REACTIONS (1)
  - Drug ineffective [Unknown]
